FAERS Safety Report 24774949 (Version 2)
Quarter: 2025Q2

REPORT INFORMATION
  Report Type: Spontaneous
  Country: US (occurrence: US)
  Receive Date: 20241226
  Receipt Date: 20250411
  Transmission Date: 20250716
  Serious: Yes (Death)
  Sender: EMD SERONO INC
  Company Number: US-Merck Healthcare KGaA-2024067197

PATIENT
  Sex: Female

DRUGS (1)
  1. REBIF [Suspect]
     Active Substance: INTERFERON BETA-1A
     Indication: Multiple sclerosis
     Dates: start: 201307, end: 20241210

REACTIONS (5)
  - Acute respiratory failure [Fatal]
  - Acute pulmonary oedema [Fatal]
  - Cardiac failure congestive [Fatal]
  - Acute kidney injury [Fatal]
  - Sepsis [Fatal]
